FAERS Safety Report 8619484-8 (Version None)
Quarter: 2012Q3

REPORT INFORMATION
  Report Type: 
  Country: None (occurrence: None)
  Receive Date: 20120824
  Receipt Date: 20120821
  Transmission Date: 20120928
  Serious: Yes (Other)
  Sender: FDA-Public Use
  Company Number: US-PFIZER INC-2012157415

PATIENT
  Age: 63 Year
  Sex: Female

DRUGS (9)
  1. CHANTIX [Suspect]
     Dosage: 1 MG, 1X/DAY
  2. FLUTICASONE PROPIONATE [Concomitant]
     Dosage: UNK
  3. PROVENTIL [Concomitant]
     Dosage: UNK
  4. ALBUTEROL [Concomitant]
     Dosage: UNK
  5. PREDNISONE [Concomitant]
     Dosage: UNK
  6. CHANTIX [Suspect]
     Dosage: 0.5 TO 1 MG AS DIRECTED
  7. SPIRIVA [Suspect]
     Dosage: UNK
  8. XANAX [Suspect]
     Dosage: UNK
  9. CALCIUM CARBONATE [Concomitant]
     Dosage: UNK

REACTIONS (6)
  - DIVERTICULUM INTESTINAL [None]
  - ABDOMINAL PAIN LOWER [None]
  - LUNG DISORDER [None]
  - ATELECTASIS [None]
  - RENAL CYST [None]
  - ARTERIOSCLEROSIS [None]
